FAERS Safety Report 8502003-4 (Version None)
Quarter: 2012Q2

REPORT INFORMATION
  Report Type: 
  Country: None (occurrence: None)
  Receive Date: 20120405
  Receipt Date: 20110425
  Transmission Date: 20120825
  Serious: Yes (Disabling, Other)
  Sender: FDA-Public Use
  Company Number: PHHY2011US28178

PATIENT
  Age: 56 Year
  Sex: Female
  Weight: 69 kg

DRUGS (5)
  1. NEXIUM [Concomitant]
  2. HYDROCHLOROTHIAZIDE [Concomitant]
  3. VICODIN [Concomitant]
  4. RECLAST [Suspect]
     Indication: OSTEOPOROSIS
     Dosage: UNK, INTRAVENOUS
     Route: 042
     Dates: start: 20110208
  5. BENICAR [Concomitant]

REACTIONS (11)
  - ANTINUCLEAR ANTIBODY INCREASED [None]
  - C-REACTIVE PROTEIN INCREASED [None]
  - HYPOTENSION [None]
  - PYREXIA [None]
  - PAIN [None]
  - ASTHENIA [None]
  - JOINT SWELLING [None]
  - RASH [None]
  - RED BLOOD CELL SEDIMENTATION RATE INCREASED [None]
  - FATIGUE [None]
  - ARTHRALGIA [None]
